FAERS Safety Report 24291428 (Version 1)
Quarter: 2024Q3

REPORT INFORMATION
  Report Type: Spontaneous
  Country: US (occurrence: None)
  Receive Date: 20240906
  Receipt Date: 20240906
  Transmission Date: 20241017
  Serious: No
  Sender: DOMPE FARMACEUTICI
  Company Number: US-FARMAPROD-202309-2674

PATIENT
  Age: 72 Year
  Sex: Male

DRUGS (2)
  1. OXERVATE [Suspect]
     Active Substance: CENEGERMIN-BKBJ
     Indication: Neurotrophic keratopathy
     Route: 047
     Dates: start: 20230828
  2. OXERVATE [Suspect]
     Active Substance: CENEGERMIN-BKBJ

REACTIONS (6)
  - Eye pain [Unknown]
  - Ocular hyperaemia [Unknown]
  - Eye swelling [Not Recovered/Not Resolved]
  - Photophobia [Unknown]
  - Eye irritation [Unknown]
  - Visual impairment [Unknown]

NARRATIVE: CASE EVENT DATE: 20230801
